FAERS Safety Report 4617432-9 (Version None)
Quarter: 2005Q1

REPORT INFORMATION
  Report Type: 
  Country: None (occurrence: None)
  Receive Date: 20050323
  Receipt Date: 20050318
  Transmission Date: 20050727
  Serious: Yes (Death)
  Sender: FDA-Public Use
  Company Number: 05-03-0459

PATIENT
  Age: 44 Year
  Sex: Female

DRUGS (1)
  1. CLOZAPINE [Suspect]
     Indication: SCHIZOAFFECTIVE DISORDER
     Dosage: 200MG QD ORAL
     Route: 048
     Dates: start: 20030801, end: 20050201

REACTIONS (1)
  - MYOCARDIAL INFARCTION [None]
